FAERS Safety Report 9759508 (Version 1)
Quarter: 2013Q4

REPORT INFORMATION
  Report Type: Spontaneous
  Country: US (occurrence: None)
  Receive Date: 20131212
  Receipt Date: 20131212
  Transmission Date: 20140711
  Serious: Yes (Death)
  Sender: FDA-Public Use
  Company Number: 2052722

PATIENT
  Sex: 0

DRUGS (4)
  1. MORPHINE SULPHATE [Suspect]
     Indication: PAIN
  2. MEPERIDINE [Concomitant]
  3. MORPHINE [Concomitant]
  4. FENTANYL [Concomitant]

REACTIONS (7)
  - Respiratory arrest [None]
  - Incorrect dose administered [None]
  - Somnolence [None]
  - Somnolence [None]
  - Snoring [None]
  - Inadequate analgesia [None]
  - Drug prescribing error [None]
